FAERS Safety Report 25058833 (Version 2)
Quarter: 2025Q3

REPORT INFORMATION
  Report Type: Report from Study
  Country: US (occurrence: US)
  Receive Date: 20250310
  Receipt Date: 20250803
  Transmission Date: 20251021
  Serious: Yes (Hospitalization)
  Sender: ALEXION PHARMACEUTICALS
  Company Number: US-ASTRAZENECA-202503USA001864US

PATIENT
  Sex: Female

DRUGS (3)
  1. BENRALIZUMAB [Suspect]
     Active Substance: BENRALIZUMAB
     Indication: Bronchiectasis
     Dosage: INJECT 1 PEN UNDER THE SKIN AT WEEK 0, 4 AND 8, THEN INJECT 1 PEN EVERY 8 WEEKS THEREAFTER
     Dates: start: 202312
  2. BENRALIZUMAB [Suspect]
     Active Substance: BENRALIZUMAB
     Indication: Asthma
  3. SYMDEKO [Concomitant]
     Active Substance: IVACAFTOR\TEZACAFTOR
     Dosage: TAKE 1 YELLOW TABLET BY MOUTH IN THE MORNING AND 1 LIGHT BLUE TABLET IN THE EVENING

REACTIONS (3)
  - Delusion [Recovering/Resolving]
  - Confusional state [Recovering/Resolving]
  - Emergency care [Recovering/Resolving]
